FAERS Safety Report 4735361-7 (Version None)
Quarter: 2005Q3

REPORT INFORMATION
  Report Type: 
  Country: None (occurrence: None)
  Receive Date: 20050805
  Receipt Date: 20050727
  Transmission Date: 20060218
  Serious: Yes (Other)
  Sender: FDA-Public Use
  Company Number: US-ROCHE-412292

PATIENT
  Sex: Female

DRUGS (2)
  1. BONIVA [Suspect]
     Route: 048
     Dates: start: 20050615
  2. UNCLASSIFIED DRUG [Concomitant]
     Indication: EPILEPSY
     Dosage: UNSPECIFIED SEIZURE MEDICATION.
     Route: 048

REACTIONS (1)
  - CONVULSION [None]
